FAERS Safety Report 17036417 (Version 1)
Quarter: 2019Q4

REPORT INFORMATION
  Report Type: Spontaneous
  Country: US (occurrence: US)
  Receive Date: 20191114
  Receipt Date: 20191114
  Transmission Date: 20200122
  Serious: Yes (Death, Life-Threatening)
  Sender: FDA-Public Use
  Company Number: None

PATIENT
  Age: 84 Year
  Sex: Male

DRUGS (2)
  1. ATIVAN [Suspect]
     Active Substance: LORAZEPAM
  2. ROXANOL [Suspect]
     Active Substance: MORPHINE SULFATE
     Indication: PRODUCT ADMINISTRATION ERROR
     Route: 048
     Dates: start: 20170226, end: 20170302

REACTIONS (2)
  - Product administration error [None]
  - Unresponsive to stimuli [None]

NARRATIVE: CASE EVENT DATE: 20170228
